FAERS Safety Report 6929957-1 (Version None)
Quarter: 2010Q3

REPORT INFORMATION
  Report Type: 
  Country: None (occurrence: None)
  Receive Date: 20100817
  Receipt Date: 20100817
  Transmission Date: 20110219
  Serious: No
  Sender: FDA-Public Use
  Company Number: None

PATIENT
  Sex: Male
  Weight: 117.9352 kg

DRUGS (3)
  1. MULTAQ [Suspect]
     Indication: ARRHYTHMIA
     Dosage: TWICE (1) DAILY
     Dates: start: 20100729
  2. MULTAQ [Suspect]
     Indication: ARRHYTHMIA
     Dosage: TWICE (1) DAILY
     Dates: start: 20100730
  3. MULTAQ [Suspect]
     Indication: ARRHYTHMIA
     Dosage: TWICE (1) DAILY
     Dates: start: 20100731

REACTIONS (6)
  - ABDOMINAL PAIN UPPER [None]
  - ASTHENIA [None]
  - DIARRHOEA [None]
  - DIZZINESS [None]
  - DYSARTHRIA [None]
  - NAUSEA [None]
